FAERS Safety Report 12311902 (Version 2)
Quarter: 2016Q4

REPORT INFORMATION
  Report Type: Report from Study
  Country: NL (occurrence: NL)
  Receive Date: 20160427
  Receipt Date: 20161114
  Transmission Date: 20170207
  Serious: Yes (Hospitalization)
  Sender: FDA-Public Use
  Company Number: NL-ASTRAZENECA-2016SE43310

PATIENT
  Age: 82 Year
  Sex: Male

DRUGS (11)
  1. FOSINOPRIL [Concomitant]
     Active Substance: FOSINOPRIL
  2. FOLIUMZUUR [Concomitant]
     Active Substance: FOLIC ACID
  3. ASPIRIN. [Suspect]
     Active Substance: ASPIRIN
     Indication: THROMBOSIS PROPHYLAXIS
     Dosage: NON AZ PRODUCT, MAINTENANCE THERAPY THAT STARTED PRIOR TO INDEX PROCEDURE.
     Route: 048
     Dates: end: 20131204
  4. ASPIRIN. [Suspect]
     Active Substance: ASPIRIN
     Indication: THROMBOSIS PROPHYLAXIS
     Dosage: NON AZ PRODUCT, MAINTENANCE THERAPY THAT STARTED PRIOR TO INDEX PROCEDURE.
     Route: 048
     Dates: start: 20150410
  5. COLCHICINE. [Concomitant]
     Active Substance: COLCHICINE
  6. METOPROLOL. [Concomitant]
     Active Substance: METOPROLOL
  7. TAMSULOSINE [Concomitant]
     Active Substance: TAMSULOSIN HYDROCHLORIDE
  8. ATORVASTATINE [Concomitant]
     Active Substance: ATORVASTATIN
  9. TICAGRELOR [Suspect]
     Active Substance: TICAGRELOR
     Indication: THROMBOSIS PROPHYLAXIS
     Route: 048
     Dates: start: 20131104, end: 20150422
  10. ALENDRONINEZUUR [Concomitant]
  11. NTG [Concomitant]
     Active Substance: NITROGLYCERIN

REACTIONS (2)
  - Non-cardiac chest pain [Recovered/Resolved]
  - Anaemia [Recovered/Resolved]

NARRATIVE: CASE EVENT DATE: 20150325
